FAERS Safety Report 14499537 (Version 1)
Quarter: 2018Q1

REPORT INFORMATION
  Report Type: Spontaneous
  Country: US (occurrence: US)
  Receive Date: 20180207
  Receipt Date: 20180207
  Transmission Date: 20180509
  Serious: No
  Sender: FDA-Public Use
  Company Number: US-PERRIGO-17US003692

PATIENT
  Age: 66 Year
  Sex: Male
  Weight: 100.23 kg

DRUGS (4)
  1. LANTUS [Concomitant]
     Active Substance: INSULIN GLARGINE
     Indication: TYPE 2 DIABETES MELLITUS
     Dosage: 23 UNITS QHS
     Route: 065
     Dates: start: 2013
  2. CETIRIZINE HYDROCHLORIDE. [Suspect]
     Active Substance: CETIRIZINE HYDROCHLORIDE
     Indication: COUGH
     Dosage: 10 MG, QAM
     Route: 048
     Dates: start: 20170403, end: 20170417
  3. METFORMIN [Concomitant]
     Active Substance: METFORMIN HYDROCHLORIDE
     Indication: TYPE 2 DIABETES MELLITUS
     Dosage: 1000 MG, BID
     Route: 048
     Dates: start: 2013
  4. CETIRIZINE HYDROCHLORIDE. [Suspect]
     Active Substance: CETIRIZINE HYDROCHLORIDE
     Indication: THROAT IRRITATION

REACTIONS (2)
  - Drug ineffective for unapproved indication [Recovered/Resolved]
  - Drug administered to patient of inappropriate age [Recovered/Resolved]

NARRATIVE: CASE EVENT DATE: 20170403
